FAERS Safety Report 19017873 (Version 1)
Quarter: 2021Q1

REPORT INFORMATION
  Report Type: Report from Study
  Country: CR (occurrence: CR)
  Receive Date: 20210317
  Receipt Date: 20210317
  Transmission Date: 20210420
  Serious: Yes (Other)
  Sender: FDA-Public Use
  Company Number: NVSC2021CR056019

PATIENT
  Age: 79 Year
  Sex: Male

DRUGS (2)
  1. CO?DIOVAN [Suspect]
     Active Substance: HYDROCHLOROTHIAZIDE\VALSARTAN
     Indication: PRODUCT USED FOR UNKNOWN INDICATION
     Dosage: 1 DF (320/25 MG, APPROXIMATELY 22 DAYS AGO)
     Route: 065
  2. EXFORGE [Suspect]
     Active Substance: AMLODIPINE BESYLATE\VALSARTAN
     Indication: PRODUCT USED FOR UNKNOWN INDICATION
     Dosage: 1 DF ( 5/160 MG, APPRIXIMATELY 2 MONTHS AGO)
     Route: 065

REACTIONS (5)
  - Hypoacusis [Unknown]
  - Angiopathy [Unknown]
  - Inflammation [Unknown]
  - Blindness [Unknown]
  - Confusional state [Unknown]
